FAERS Safety Report 5903520-3 (Version None)
Quarter: 2008Q3

REPORT INFORMATION
  Report Type: 
  Country: None (occurrence: None)
  Receive Date: 20080919
  Receipt Date: 20080818
  Transmission Date: 20090109
  Serious: No
  Sender: FDA-Public Use
  Company Number: US-WYE-H05630808

PATIENT
  Age: 46 Year
  Sex: Female

DRUGS (4)
  1. PRISTIQ [Suspect]
     Indication: DEPRESSION
     Dosage: 50 MG 1X PER 1 DAY, ORAL
     Route: 048
     Dates: start: 20080801
  2. LAMICTAL [Concomitant]
  3. L-METHYLFOLATE (L-METHYLFOLATE) [Concomitant]
  4. NORVASC [Concomitant]

REACTIONS (1)
  - ARTHRALGIA [None]
